FAERS Safety Report 4325326-1 (Version None)
Quarter: 2004Q1

REPORT INFORMATION
  Report Type: 
  Country: None (occurrence: None)
  Receive Date: 20040326
  Receipt Date: 20040326
  Transmission Date: 20041129
  Serious: Yes (Life-Threatening, Hospitalization)
  Sender: FDA-Public Use
  Company Number: None

PATIENT
  Age: 72 Year
  Sex: Female
  Weight: 78.4 kg

DRUGS (3)
  1. HYDRALAZINE 20 MG [Suspect]
     Indication: HYPERTENSION
     Dosage: 20 MG EVERY 6 HO IV
     Route: 042
     Dates: start: 20040320, end: 20040320
  2. METOPROLOL [Concomitant]
  3. NITROPASTE [Concomitant]

REACTIONS (1)
  - CARDIAC ARREST [None]
